FAERS Safety Report 5614100-1 (Version None)
Quarter: 2008Q1

REPORT INFORMATION
  Report Type: 
  Country: None (occurrence: None)
  Receive Date: 20080130
  Receipt Date: 20080121
  Transmission Date: 20080703
  Serious: Yes (Hospitalization)
  Sender: FDA-Public Use
  Company Number: 100#08#2008-00400

PATIENT
  Age: 46 Year
  Sex: Female

DRUGS (5)
  1. ZONEGRAN [Suspect]
     Indication: BRAIN OEDEMA
     Dosage: 200 MG
     Dates: start: 19991001
  2. ZONEGRAN [Suspect]
     Indication: CONVULSION PROPHYLAXIS
     Dosage: 200 MG
     Dates: start: 19991001
  3. ZONEGRAN [Suspect]
     Indication: PROPHYLAXIS
     Dosage: 200 MG
     Dates: start: 19991001
  4. PREDNISONE [Concomitant]
  5. CORTICOSTEROIDS (CORTICOSTEROIDS) [Concomitant]

REACTIONS (10)
  - ALOPECIA [None]
  - BLOOD THYROID STIMULATING HORMONE INCREASED [None]
  - DRUG RASH WITH EOSINOPHILIA AND SYSTEMIC SYMPTOMS [None]
  - IMMUNE SYSTEM DISORDER [None]
  - LYMPHOCYTE TRANSFORMATION TEST POSITIVE [None]
  - PANCYTOPENIA [None]
  - RAYNAUD'S PHENOMENON [None]
  - SCLERODERMA [None]
  - THYROID DISORDER [None]
  - TRI-IODOTHYRONINE DECREASED [None]
